FAERS Safety Report 21050518 (Version 3)
Quarter: 2022Q3

REPORT INFORMATION
  Report Type: Report from Study
  Country: US (occurrence: US)
  Receive Date: 20220707
  Receipt Date: 20220905
  Transmission Date: 20221027
  Serious: Yes (Other)
  Sender: FDA-Public Use
  Company Number: US-ABBVIE-22K-163-4453153-00

PATIENT
  Sex: Male

DRUGS (2)
  1. RINVOQ [Suspect]
     Active Substance: UPADACITINIB
     Indication: Product used for unknown indication
     Route: 048
  2. PFIZER-BIONTECH COVID-19 VACCINE [Suspect]
     Active Substance: TOZINAMERAN
     Indication: COVID-19 immunisation
     Dosage: 1ST DOSE
     Route: 030
     Dates: start: 20210805, end: 20210805

REACTIONS (7)
  - Prostate cancer [Not Recovered/Not Resolved]
  - Pulmonary fibrosis [Unknown]
  - Prostatic specific antigen increased [Not Recovered/Not Resolved]
  - COVID-19 [Recovered/Resolved with Sequelae]
  - Illness [Recovered/Resolved]
  - Intervertebral disc protrusion [Unknown]
  - Nerve compression [Unknown]

NARRATIVE: CASE EVENT DATE: 20210101
